FAERS Safety Report 6467233-4 (Version None)
Quarter: 2009Q4

REPORT INFORMATION
  Report Type: 
  Country: None (occurrence: None)
  Receive Date: 20091202
  Receipt Date: 20091123
  Transmission Date: 20100525
  Serious: Yes (Death)
  Sender: FDA-Public Use
  Company Number: DE-ABBOTT-09P-062-0608277-00

PATIENT
  Sex: Male
  Weight: 42.7 kg

DRUGS (6)
  1. HUMIRA [Suspect]
     Indication: CROHN'S DISEASE
     Route: 058
     Dates: start: 20080101, end: 20090801
  2. HUMIRA [Suspect]
     Route: 058
     Dates: start: 20090926
  3. GLUCOSTEROIDS [Concomitant]
     Indication: CROHN'S DISEASE
  4. PREDNISOLONE [Concomitant]
     Indication: CROHN'S DISEASE
  5. SALOFALK [Concomitant]
     Indication: CROHN'S DISEASE
  6. VITAMIN B-12 [Concomitant]
     Indication: DRUG USE FOR UNKNOWN INDICATION
     Dosage: 1 INJECTION EVERY 4-5 WEEKS
     Route: 050

REACTIONS (3)
  - DEEP VEIN THROMBOSIS [None]
  - PULMONARY EMBOLISM [None]
  - SUDDEN DEATH [None]
